FAERS Safety Report 4755086-1 (Version None)
Quarter: 2005Q3

REPORT INFORMATION
  Report Type: 
  Country: None (occurrence: None)
  Receive Date: 20050825
  Receipt Date: 20050815
  Transmission Date: 20060218
  Serious: Yes (Other)
  Sender: FDA-Public Use
  Company Number: 12033

PATIENT
  Age: 48 Year
  Sex: Male

DRUGS (1)
  1. METHOTREXATE [Suspect]
     Indication: ANKYLOSING SPONDYLITIS

REACTIONS (4)
  - ACQUIRED IMMUNODEFICIENCY SYNDROME [None]
  - ARTHROPATHY [None]
  - HIV TEST POSITIVE [None]
  - KAPOSI'S SARCOMA [None]
